FAERS Safety Report 4897241-6 (Version None)
Quarter: 2006Q1

REPORT INFORMATION
  Report Type: 
  Country: None (occurrence: None)
  Receive Date: 20060127
  Receipt Date: 20060106
  Transmission Date: 20060701
  Serious: Yes (Hospitalization, Other)
  Sender: FDA-Public Use
  Company Number: US_0509121875

PATIENT
  Sex: Male
  Weight: 53.1 kg

DRUGS (1)
  1. ZYPREXA [Suspect]
     Indication: HALLUCINATION, AUDITORY
     Dosage: 2/D, ORAL
     Route: 048
     Dates: start: 19990101

REACTIONS (10)
  - ABDOMINAL PAIN UPPER [None]
  - DIABETES MELLITUS [None]
  - FEELING ABNORMAL [None]
  - HYPERTENSION [None]
  - NAUSEA [None]
  - NERVOUSNESS [None]
  - PANCREATITIS [None]
  - RENAL FAILURE [None]
  - WEIGHT DECREASED [None]
  - WEIGHT GAIN POOR [None]
